FAERS Safety Report 14962976 (Version 1)
Quarter: 2018Q2

REPORT INFORMATION
  Report Type: Spontaneous
  Country: US (occurrence: US)
  Receive Date: 20180510
  Receipt Date: 20180510
  Transmission Date: 20180711
  Serious: No
  Sender: FDA-Public Use
  Company Number: None

PATIENT
  Sex: Male

DRUGS (10)
  1. GLEOSTINE [Suspect]
     Active Substance: LOMUSTINE
     Indication: NEOPLASM MALIGNANT
     Route: 048
     Dates: start: 20180330
  2. HALOPERIDOL. [Concomitant]
     Active Substance: HALOPERIDOL
  3. DEXAMETHASON [Concomitant]
     Active Substance: DEXAMETHASONE
  4. LEVETIRACETA [Concomitant]
  5. METOPROLOL TARTRATE. [Concomitant]
     Active Substance: METOPROLOL TARTRATE
  6. OMEPRAZOLE. [Concomitant]
     Active Substance: OMEPRAZOLE
  7. APAP/CODEINE [Concomitant]
     Active Substance: ACETAMINOPHEN\CODEINE PHOSPHATE
  8. MEMANTINE. [Concomitant]
     Active Substance: MEMANTINE
  9. ATORVASTATIN [Concomitant]
     Active Substance: ATORVASTATIN
  10. MATULANE [Concomitant]
     Active Substance: PROCARBAZINE HYDROCHLORIDE

REACTIONS (1)
  - Drug ineffective [None]
